FAERS Safety Report 23644350 (Version 1)
Quarter: 2024Q1

REPORT INFORMATION
  Report Type: Spontaneous
  Country: US (occurrence: US)
  Receive Date: 20240318
  Receipt Date: 20240318
  Transmission Date: 20240410
  Serious: Yes (Death)
  Sender: FDA-Public Use
  Company Number: US-PFIZER INC-PV202400036350

PATIENT
  Age: 61 Year
  Sex: Female

DRUGS (2)
  1. SOLU-MEDROL [Suspect]
     Active Substance: METHYLPREDNISOLONE SODIUM SUCCINATE
     Indication: Interstitial lung disease
     Dosage: 250 MG, 4X/DAY
  2. BARICITINIB [Suspect]
     Active Substance: BARICITINIB
     Indication: Interstitial lung disease
     Route: 048

REACTIONS (1)
  - Drug ineffective [Fatal]
